FAERS Safety Report 5621798-0 (Version None)
Quarter: 2008Q1

REPORT INFORMATION
  Report Type: 
  Country: None (occurrence: None)
  Receive Date: 20080211
  Receipt Date: 20080201
  Transmission Date: 20080703
  Serious: Yes (Other)
  Sender: FDA-Public Use
  Company Number: JP-BRISTOL-MYERS SQUIBB COMPANY-14064885

PATIENT
  Age: 85 Year
  Sex: Male
  Weight: 38 kg

DRUGS (6)
  1. ABILIFY [Suspect]
     Indication: DEMENTIA
     Dosage: 04OCT07-17OCT07:3MG QD, THERAPY DURATION:14 DAYS
     Route: 048
     Dates: start: 20071018, end: 20080118
  2. BUFFERIN [Suspect]
     Indication: CEREBRAL INFARCTION
     Dosage: BUFFERIN 81MG TABLET
     Route: 048
     Dates: start: 20070302, end: 20080118
  3. WARFARIN SODIUM [Suspect]
     Indication: ATRIAL FIBRILLATION
     Dosage: 2MG UNK-22-MAR-07,1MG:20-APR-07-30-AUG-07AND1.5MG:23-MAR-07TO19-APR-07,3MG:18-OCT-07-18-JAN-08
     Route: 048
     Dates: start: 20070831, end: 20080118
  4. NIVADIL [Concomitant]
     Dosage: NIVADIL TABLET
     Dates: start: 20070302, end: 20080118
  5. NITRAZEPAM [Concomitant]
     Dosage: TABLET
     Dates: end: 20080118
  6. MYSLEE [Concomitant]
     Dosage: TABLET
     Dates: start: 20070806, end: 20080118

REACTIONS (1)
  - PROTHROMBIN TIME PROLONGED [None]
